FAERS Safety Report 17971115 (Version 14)
Quarter: 2020Q4

REPORT INFORMATION
  Report Type: Report from Study
  Country: HU (occurrence: HU)
  Receive Date: 20200701
  Receipt Date: 20201231
  Transmission Date: 20210113
  Serious: Yes (Other)
  Sender: FDA-Public Use
  Company Number: NVSC2020HU184867

PATIENT
  Age: 22 Month
  Sex: Male
  Weight: 9.8 kg

DRUGS (7)
  1. FAMOTIDINE. [Concomitant]
     Active Substance: FAMOTIDINE
     Indication: PRODUCT USED FOR UNKNOWN INDICATION
     Dosage: 25 MG
     Route: 065
     Dates: start: 20200518
  2. ZOLGENSMA [Suspect]
     Active Substance: ONASEMNOGENE ABEPARVOVEC-XIOI
     Indication: SPINAL MUSCULAR ATROPHY
     Dosage: 55.3 ML
     Route: 042
     Dates: start: 20200519
  3. PREDNISOLON [Concomitant]
     Active Substance: PREDNISOLONE
     Dosage: 0.8 MG/KG
     Route: 065
     Dates: start: 20200714
  4. NUSINERSEN [Concomitant]
     Active Substance: NUSINERSEN
     Indication: SPINAL MUSCULAR ATROPHY
     Dosage: 6 UNK
     Route: 065
     Dates: start: 20190614, end: 20200408
  5. ZOLGENSMA [Suspect]
     Active Substance: ONASEMNOGENE ABEPARVOVEC-XIOI
     Dosage: 8.3 ML (FREQ: 3 X) (TOTAL: 55.3 ML)
     Route: 042
  6. ZOLGENSMA [Suspect]
     Active Substance: ONASEMNOGENE ABEPARVOVEC-XIOI
     Dosage: 5.5 ML (FREQ:1X) (TOTAL:55.3 ML)
     Route: 042
  7. PREDNISOLON [Concomitant]
     Active Substance: PREDNISOLONE
     Indication: PRODUCT USED FOR UNKNOWN INDICATION
     Dosage: 1 MG/KG
     Route: 065
     Dates: start: 20200518

REACTIONS (9)
  - Alanine aminotransferase increased [Recovering/Resolving]
  - Granulocytopenia [Recovered/Resolved]
  - Aspartate aminotransferase increased [Recovering/Resolving]
  - Troponin increased [Unknown]
  - Pyrexia [Unknown]
  - Blood lactate dehydrogenase increased [Recovering/Resolving]
  - Leukopenia [Recovered/Resolved]
  - Thrombocytopenia [Recovered/Resolved]
  - Neutropenia [Recovering/Resolving]

NARRATIVE: CASE EVENT DATE: 2020
